FAERS Safety Report 19952628 (Version 4)
Quarter: 2022Q3

REPORT INFORMATION
  Report Type: Report from Study
  Country: JP (occurrence: JP)
  Receive Date: 20211014
  Receipt Date: 20220713
  Transmission Date: 20221026
  Serious: No
  Sender: FDA-Public Use
  Company Number: JP-CELLTRION INC.-2021JP013928

PATIENT

DRUGS (44)
  1. INVESTIGATIONAL BIOSIMILARS [Suspect]
     Active Substance: INVESTIGATIONAL BIOSIMILARS
     Indication: HER2 positive gastric cancer
     Dosage: 516 MILLIGRAM, QD
     Route: 041
     Dates: start: 20201006, end: 20201006
  2. INVESTIGATIONAL BIOSIMILARS [Suspect]
     Active Substance: INVESTIGATIONAL BIOSIMILARS
     Dosage: 373 MILLIGRAM, QD
     Route: 041
     Dates: start: 20201027, end: 20201027
  3. INVESTIGATIONAL BIOSIMILARS [Suspect]
     Active Substance: INVESTIGATIONAL BIOSIMILARS
     Dosage: 373 MILLIGRAM, QD
     Route: 041
     Dates: start: 20201117, end: 20201117
  4. INVESTIGATIONAL BIOSIMILARS [Suspect]
     Active Substance: INVESTIGATIONAL BIOSIMILARS
     Dosage: 373 MILLIGRAM, QD
     Route: 041
     Dates: start: 20201208, end: 20201208
  5. INVESTIGATIONAL BIOSIMILARS [Suspect]
     Active Substance: INVESTIGATIONAL BIOSIMILARS
     Dosage: 373 MILLIGRAM, QD
     Route: 041
     Dates: start: 20210105, end: 20210105
  6. INVESTIGATIONAL BIOSIMILARS [Suspect]
     Active Substance: INVESTIGATIONAL BIOSIMILARS
     Dosage: 373 MILLIGRAM, QD
     Route: 041
     Dates: start: 20210126, end: 20210126
  7. INVESTIGATIONAL BIOSIMILARS [Suspect]
     Active Substance: INVESTIGATIONAL BIOSIMILARS
     Dosage: 373 MILLIGRAM, QD
     Route: 041
     Dates: start: 20210216, end: 20210216
  8. INVESTIGATIONAL BIOSIMILARS [Suspect]
     Active Substance: INVESTIGATIONAL BIOSIMILARS
     Dosage: 373 MILLIGRAM, QD
     Route: 041
     Dates: start: 20210309, end: 20210309
  9. INVESTIGATIONAL BIOSIMILARS [Suspect]
     Active Substance: INVESTIGATIONAL BIOSIMILARS
     Dosage: 373 MILLIGRAM, QD
     Route: 041
     Dates: start: 20210330, end: 20210330
  10. INVESTIGATIONAL BIOSIMILARS [Suspect]
     Active Substance: INVESTIGATIONAL BIOSIMILARS
     Dosage: 373 MILLIGRAM, QD
     Route: 041
     Dates: start: 20210420, end: 20210420
  11. INVESTIGATIONAL BIOSIMILARS [Suspect]
     Active Substance: INVESTIGATIONAL BIOSIMILARS
     Dosage: 373 MILLIGRAM, QD
     Route: 041
     Dates: start: 20210511, end: 20210511
  12. INVESTIGATIONAL BIOSIMILARS [Suspect]
     Active Substance: INVESTIGATIONAL BIOSIMILARS
     Dosage: 373 MILLIGRAM, QD
     Route: 041
     Dates: start: 20210601, end: 20210601
  13. INVESTIGATIONAL BIOSIMILARS [Suspect]
     Active Substance: INVESTIGATIONAL BIOSIMILARS
     Dosage: 373 MILLIGRAM, QD
     Route: 041
     Dates: start: 20210622, end: 20210622
  14. INVESTIGATIONAL BIOSIMILARS [Suspect]
     Active Substance: INVESTIGATIONAL BIOSIMILARS
     Dosage: 373 MILLIGRAM, QD
     Route: 041
     Dates: start: 20210715, end: 20210715
  15. INVESTIGATIONAL BIOSIMILARS [Suspect]
     Active Substance: INVESTIGATIONAL BIOSIMILARS
     Dosage: 373 MILLIGRAM, QD
     Route: 041
     Dates: start: 20210805, end: 20210805
  16. INVESTIGATIONAL BIOSIMILARS [Suspect]
     Active Substance: INVESTIGATIONAL BIOSIMILARS
     Dosage: 373 MILLIGRAM, QD
     Route: 041
     Dates: start: 20210826, end: 20210826
  17. INVESTIGATIONAL BIOSIMILARS [Suspect]
     Active Substance: INVESTIGATIONAL BIOSIMILARS
     Dosage: 373 MILLIGRAM, QD
     Route: 041
     Dates: start: 20210916, end: 20210916
  18. OXALIPLATIN [Suspect]
     Active Substance: OXALIPLATIN
     Indication: HER2 positive gastric cancer
     Dosage: 175 MILLIGRAM, QD
     Route: 041
     Dates: start: 20201006, end: 20201006
  19. OXALIPLATIN [Suspect]
     Active Substance: OXALIPLATIN
     Dosage: 173 MILLIGRAM, QD
     Route: 041
     Dates: start: 20201027, end: 20201027
  20. OXALIPLATIN [Suspect]
     Active Substance: OXALIPLATIN
     Dosage: 173 MILLIGRAM, QD
     Route: 041
     Dates: start: 20201117, end: 20201117
  21. OXALIPLATIN [Suspect]
     Active Substance: OXALIPLATIN
     Dosage: 173 MILLIGRAM, QD
     Route: 041
     Dates: start: 20201208, end: 20201208
  22. OXALIPLATIN [Suspect]
     Active Substance: OXALIPLATIN
     Dosage: 173 MILLIGRAM, QD
     Route: 041
     Dates: start: 20210105, end: 20210105
  23. OXALIPLATIN [Suspect]
     Active Substance: OXALIPLATIN
     Dosage: 173 MILLIGRAM, QD
     Route: 041
     Dates: start: 20210126, end: 20210126
  24. OXALIPLATIN [Suspect]
     Active Substance: OXALIPLATIN
     Dosage: 173 MILLIGRAM, QD
     Route: 041
     Dates: start: 20210216, end: 20210216
  25. GIMERACIL\OTERACIL\TEGAFUR [Suspect]
     Active Substance: GIMERACIL\OTERACIL\TEGAFUR
     Indication: HER2 positive gastric cancer
     Dosage: 120 MILLIGRAM, QD
     Route: 048
     Dates: start: 20201006, end: 20201020
  26. GIMERACIL\OTERACIL\TEGAFUR [Suspect]
     Active Substance: GIMERACIL\OTERACIL\TEGAFUR
     Dosage: 120 MILLIGRAM, QD
     Route: 048
     Dates: start: 20201027, end: 20201110
  27. GIMERACIL\OTERACIL\TEGAFUR [Suspect]
     Active Substance: GIMERACIL\OTERACIL\TEGAFUR
     Dosage: 120 MILLIGRAM, QD
     Route: 048
     Dates: start: 20201117, end: 20201201
  28. GIMERACIL\OTERACIL\TEGAFUR [Suspect]
     Active Substance: GIMERACIL\OTERACIL\TEGAFUR
     Dosage: 100 MILLIGRAM, QD
     Route: 048
     Dates: start: 20201208, end: 20201222
  29. GIMERACIL\OTERACIL\TEGAFUR [Suspect]
     Active Substance: GIMERACIL\OTERACIL\TEGAFUR
     Dosage: 100 MILLIGRAM, QD
     Route: 048
     Dates: start: 20210105, end: 20210119
  30. GIMERACIL\OTERACIL\TEGAFUR [Suspect]
     Active Substance: GIMERACIL\OTERACIL\TEGAFUR
     Dosage: 100 MILLIGRAM, QD
     Route: 048
     Dates: start: 20210126, end: 20210209
  31. GIMERACIL\OTERACIL\TEGAFUR [Suspect]
     Active Substance: GIMERACIL\OTERACIL\TEGAFUR
     Dosage: 100 MILLIGRAM, QD
     Route: 048
     Dates: start: 20210216, end: 20210302
  32. GIMERACIL\OTERACIL\TEGAFUR [Suspect]
     Active Substance: GIMERACIL\OTERACIL\TEGAFUR
     Dosage: 100 MILLIGRAM, QD
     Route: 048
     Dates: start: 20210309, end: 20210323
  33. GIMERACIL\OTERACIL\TEGAFUR [Suspect]
     Active Substance: GIMERACIL\OTERACIL\TEGAFUR
     Dosage: 100 MILLIGRAM, QD
     Route: 048
     Dates: start: 20210330, end: 20210413
  34. GIMERACIL\OTERACIL\TEGAFUR [Suspect]
     Active Substance: GIMERACIL\OTERACIL\TEGAFUR
     Dosage: 100 MILLIGRAM, QD
     Route: 048
     Dates: start: 20210420, end: 20210504
  35. GIMERACIL\OTERACIL\TEGAFUR [Suspect]
     Active Substance: GIMERACIL\OTERACIL\TEGAFUR
     Dosage: 100 MILLIGRAM, QD
     Route: 048
     Dates: start: 20210511, end: 20210525
  36. GIMERACIL\OTERACIL\TEGAFUR [Suspect]
     Active Substance: GIMERACIL\OTERACIL\TEGAFUR
     Dosage: 100 MILLIGRAM, QD
     Route: 048
     Dates: start: 20210601, end: 20210615
  37. GIMERACIL\OTERACIL\TEGAFUR [Suspect]
     Active Substance: GIMERACIL\OTERACIL\TEGAFUR
     Dosage: 100 MILLIGRAM, QD
     Route: 048
     Dates: start: 20210622, end: 20210706
  38. GIMERACIL\OTERACIL\TEGAFUR [Suspect]
     Active Substance: GIMERACIL\OTERACIL\TEGAFUR
     Dosage: 100 MILLIGRAM, QD
     Route: 048
     Dates: start: 20210715, end: 20210729
  39. GIMERACIL\OTERACIL\TEGAFUR [Suspect]
     Active Substance: GIMERACIL\OTERACIL\TEGAFUR
     Dosage: 100 MILLIGRAM, QD
     Route: 048
     Dates: start: 20210805, end: 20210819
  40. GIMERACIL\OTERACIL\TEGAFUR [Suspect]
     Active Substance: GIMERACIL\OTERACIL\TEGAFUR
     Dosage: 100 MILLIGRAM, QD
     Route: 048
     Dates: start: 20210826, end: 20210909
  41. GIMERACIL\OTERACIL\TEGAFUR [Suspect]
     Active Substance: GIMERACIL\OTERACIL\TEGAFUR
     Dosage: 100 MILLIGRAM, QD
     Route: 048
     Dates: start: 20210916, end: 20210930
  42. APREPITANT [Concomitant]
     Active Substance: APREPITANT
     Indication: Prophylaxis of nausea and vomiting
     Dosage: UNK
     Dates: end: 20210330
  43. DECADRON [Concomitant]
     Active Substance: DEXAMETHASONE
     Indication: Prophylaxis of nausea and vomiting
     Dosage: UNK
     Dates: end: 20210311
  44. FEXOFENADINE HYDROCHLORIDE [Concomitant]
     Active Substance: FEXOFENADINE HYDROCHLORIDE
     Indication: Prophylaxis
     Dosage: UNK
     Dates: start: 20210511

REACTIONS (22)
  - Abdominal distension [Recovered/Resolved]
  - Vascular pain [Recovering/Resolving]
  - Gamma-glutamyltransferase increased [Recovering/Resolving]
  - Peripheral sensory neuropathy [Not Recovered/Not Resolved]
  - Infusion related reaction [Recovered/Resolved]
  - Diarrhoea [Recovered/Resolved]
  - Diarrhoea [Recovered/Resolved]
  - Diarrhoea [Recovered/Resolved]
  - Decreased appetite [Recovered/Resolved]
  - Decreased appetite [Recovered/Resolved]
  - Nausea [Recovered/Resolved]
  - Nausea [Recovered/Resolved]
  - Anaemia [Not Recovered/Not Resolved]
  - Neutrophil count decreased [Recovering/Resolving]
  - Malaise [Recovered/Resolved]
  - Malaise [Recovered/Resolved]
  - White blood cell count decreased [Recovering/Resolving]
  - Platelet count decreased [Recovering/Resolving]
  - Urticaria [Recovering/Resolving]
  - Dyspnoea [Recovered/Resolved]
  - Underdose [Unknown]
  - Off label use [Unknown]

NARRATIVE: CASE EVENT DATE: 20201006
